FAERS Safety Report 4304389-3 (Version None)
Quarter: 2004Q1

REPORT INFORMATION
  Report Type: 
  Country: None (occurrence: None)
  Receive Date: 20040224
  Receipt Date: 20040212
  Transmission Date: 20041129
  Serious: Yes (Hospitalization)
  Sender: FDA-Public Use
  Company Number: 04P-163-0250176-00

PATIENT
  Age: 64 Year
  Sex: Female

DRUGS (10)
  1. HUMIRA [Suspect]
     Indication: RHEUMATOID ARTHRITIS
     Dosage: 40 MCG, 1 IN 2 WK, SUBCUTANEOUS
     Route: 058
     Dates: start: 20030530
  2. PREDNISONE [Concomitant]
  3. TRAZODONE HCL [Concomitant]
  4. ESTROGENS CONJUGATED [Concomitant]
  5. HYDROXYCHLOROQUINE PHOSPHATE [Concomitant]
  6. ALENDRONATE SODIUM [Concomitant]
  7. PAROXETINE HCL [Concomitant]
  8. MULTI-VITAMINS [Concomitant]
  9. CALCIUM WITH VITAMIN D [Concomitant]
  10. CLONAZEPAM [Concomitant]

REACTIONS (4)
  - CARDIAC FAILURE CONGESTIVE [None]
  - CARDIOMYOPATHY [None]
  - HAEMOPTYSIS [None]
  - VENTRICULAR FIBRILLATION [None]
